FAERS Safety Report 21366360 (Version 1)
Quarter: 2022Q3

REPORT INFORMATION
  Report Type: Report from Study
  Country: US (occurrence: US)
  Receive Date: 20220922
  Receipt Date: 20220922
  Transmission Date: 20221027
  Serious: No
  Sender: FDA-Public Use
  Company Number: US-ACADIA PHARMACEUTICALS INC.-ACA-2022-PIM-002949

PATIENT
  Sex: Male

DRUGS (1)
  1. NUPLAZID [Suspect]
     Active Substance: PIMAVANSERIN TARTRATE
     Indication: Parkinson^s disease psychosis
     Dosage: 34 MILLIGRAM, QD
     Route: 065

REACTIONS (9)
  - Anger [Recovered/Resolved]
  - Muscular weakness [Recovered/Resolved]
  - Product dose omission issue [Recovered/Resolved]
  - Abnormal behaviour [Recovered/Resolved]
  - Screaming [Recovered/Resolved]
  - Delusion [Recovered/Resolved]
  - Fall [Recovered/Resolved]
  - Hallucination [Recovered/Resolved]
  - Gait disturbance [Recovered/Resolved]
